FAERS Safety Report 15286268 (Version 1)
Quarter: 2018Q4

REPORT INFORMATION
  Report Type: Spontaneous
  Country: US (occurrence: US)
  Receive Date: 20180816
  Receipt Date: 20180816
  Transmission Date: 20190204
  Serious: No
  Sender: FDA-Public Use
  Company Number: US-ACLARIS THERAPEUTICS-2018US005902

PATIENT
  Age: 58 Year
  Sex: Female

DRUGS (2)
  1. AQUAPHOR                           /01181901/ [Concomitant]
     Indication: PRODUCT USED FOR UNKNOWN INDICATION
     Dosage: UNK
  2. ESKATA [Suspect]
     Active Substance: HYDROGEN PEROXIDE
     Indication: SEBORRHOEIC KERATOSIS
     Dosage: 1 DF, 4 TIMES
     Route: 061
     Dates: start: 20180605, end: 20180605

REACTIONS (1)
  - Eyelid oedema [Recovering/Resolving]

NARRATIVE: CASE EVENT DATE: 20180605
